FAERS Safety Report 9177868 (Version 1)
Quarter: 2013Q1

REPORT INFORMATION
  Report Type: Spontaneous
  Country: NL (occurrence: NL)
  Receive Date: 20130321
  Receipt Date: 20130321
  Transmission Date: 20140127
  Serious: Yes (Hospitalization)
  Sender: FDA-Public Use
  Company Number: NL-PFIZER INC-2013089882

PATIENT
  Age: 52 Year
  Sex: Male
  Weight: 102 kg

DRUGS (6)
  1. SERTRALINE [Suspect]
     Indication: DEPRESSION
     Dosage: 50 MG, 1X/DAY
     Dates: start: 2011, end: 2012
  2. PRIADEL [Suspect]
     Indication: CLUSTER HEADACHE
     Dosage: 600 MG, 2X/DAY
     Dates: start: 20111101
  3. PRIADEL [Suspect]
     Dosage: 1000 MG, 1X/DAY
  4. PRIADEL [Suspect]
     Dosage: 800 MG, 1X/DAY
  5. OMEPRAZOL [Concomitant]
     Dosage: 20 MG, 2X/DAY
  6. DIOVAN (VALSARTAN) [Concomitant]
     Dosage: 80 MG, 1X/DAY
     Dates: start: 2007

REACTIONS (3)
  - Apathy [Recovered/Resolved with Sequelae]
  - Dysphemia [Not Recovered/Not Resolved]
  - Toxicity to various agents [Recovered/Resolved]
